FAERS Safety Report 13896324 (Version 2)
Quarter: 2017Q3

REPORT INFORMATION
  Report Type: Spontaneous
  Country: CA (occurrence: CA)
  Receive Date: 20170823
  Receipt Date: 20170828
  Transmission Date: 20171127
  Serious: Yes (Life-Threatening, Hospitalization, Other)
  Sender: FDA-Public Use
  Company Number: CA-ALLERGAN-1735846US

PATIENT
  Age: 49 Year
  Sex: Female

DRUGS (3)
  1. RISPERIDONE. [Suspect]
     Active Substance: RISPERIDONE
     Indication: PRODUCT USED FOR UNKNOWN INDICATION
     Dosage: 6 MG, UNK
     Route: 065
  2. ESCITALOPRAM OXALATE UNK [Suspect]
     Active Substance: ESCITALOPRAM OXALATE
     Indication: PRODUCT USED FOR UNKNOWN INDICATION
     Dosage: 60 MG, UNK
     Route: 048
  3. AMLODIPINE [Suspect]
     Active Substance: AMLODIPINE BESYLATE
     Indication: PRODUCT USED FOR UNKNOWN INDICATION
     Dosage: 150 MG, UNK
     Route: 048

REACTIONS (18)
  - Shock [Recovered/Resolved]
  - Blindness [Not Recovered/Not Resolved]
  - Optic nerve injury [Not Recovered/Not Resolved]
  - Visual impairment [Not Recovered/Not Resolved]
  - Toxicity to various agents [Not Recovered/Not Resolved]
  - Hypotension [Recovered/Resolved]
  - Intentional overdose [Unknown]
  - Circulatory collapse [Recovered/Resolved]
  - Anuria [Recovered/Resolved]
  - Tachycardia [Recovered/Resolved]
  - Altered state of consciousness [Recovering/Resolving]
  - Pulmonary oedema [Recovered/Resolved]
  - Optic atrophy [Not Recovered/Not Resolved]
  - Renal tubular necrosis [Recovered/Resolved]
  - Mitral valve stenosis [Recovered/Resolved]
  - Hypokalaemia [Recovering/Resolving]
  - Hypoglycaemia [Recovering/Resolving]
  - Hyperdynamic left ventricle [Recovered/Resolved]
